FAERS Safety Report 17202013 (Version 1)
Quarter: 2019Q4

REPORT INFORMATION
  Report Type: Spontaneous
  Country: CA (occurrence: CA)
  Receive Date: 20191226
  Receipt Date: 20191226
  Transmission Date: 20200122
  Serious: Yes (Other)
  Sender: FDA-Public Use
  Company Number: CA-PFIZER INC-2017036255

PATIENT
  Age: 66 Year
  Sex: Female

DRUGS (4)
  1. XELJANZ [Suspect]
     Active Substance: TOFACITINIB CITRATE
     Dosage: 5 MG, 2XDAY
     Route: 048
     Dates: start: 201811, end: 201811
  2. METHOTREXATE. [Concomitant]
     Active Substance: METHOTREXATE
     Indication: RHEUMATOID ARTHRITIS
     Dosage: 20 MG, WEEKLY
     Route: 065
     Dates: start: 201403
  3. XELJANZ [Suspect]
     Active Substance: TOFACITINIB CITRATE
     Dosage: 5 MG, 2XDAY
     Route: 048
     Dates: start: 201811, end: 201811
  4. XELJANZ [Suspect]
     Active Substance: TOFACITINIB CITRATE
     Indication: RHEUMATOID ARTHRITIS
     Dosage: 5 MG, 2X/DAY
     Route: 048
     Dates: start: 20160615, end: 20181031

REACTIONS (12)
  - Therapeutic product effect decreased [Unknown]
  - Mobility decreased [Recovering/Resolving]
  - Hypersomnia [Not Recovered/Not Resolved]
  - Nausea [Recovered/Resolved]
  - Arthralgia [Recovering/Resolving]
  - Pain in extremity [Recovering/Resolving]
  - Condition aggravated [Recovering/Resolving]
  - Fatigue [Recovering/Resolving]
  - Postoperative wound infection [Recovered/Resolved]
  - Back pain [Recovering/Resolving]
  - Musculoskeletal stiffness [Not Recovered/Not Resolved]
  - Hallucination, auditory [Recovered/Resolved]

NARRATIVE: CASE EVENT DATE: 201611
